FAERS Safety Report 5981782-4 (Version None)
Quarter: 2008Q4

REPORT INFORMATION
  Report Type: 
  Country: None (occurrence: None)
  Receive Date: 20081202
  Receipt Date: 20081117
  Transmission Date: 20090506
  Serious: Yes (Hospitalization)
  Sender: FDA-Public Use
  Company Number: 430025K08USA

PATIENT
  Age: 40 Year
  Sex: Female

DRUGS (3)
  1. NOVANTRONE [Suspect]
     Indication: MULTIPLE SCLEROSIS
     Dates: start: 20030619, end: 20030701
  2. AVONEX [Suspect]
     Indication: MULTIPLE SCLEROSIS
     Dosage: INTRAMUSCULAR, INTRAMUSCULAR
     Route: 030
     Dates: start: 19960318, end: 20030619
  3. AVONEX [Suspect]
     Indication: MULTIPLE SCLEROSIS
     Dosage: INTRAMUSCULAR, INTRAMUSCULAR
     Route: 030
     Dates: start: 20060714

REACTIONS (1)
  - NONSPECIFIC REACTION [None]
